FAERS Safety Report 9466005 (Version 1)
Quarter: 2013Q3

REPORT INFORMATION
  Report Type: Spontaneous
  Country: US (occurrence: US)
  Receive Date: 20130820
  Receipt Date: 20130820
  Transmission Date: 20140515
  Serious: No
  Sender: FDA-Public Use
  Company Number: US-MYLANLABS-2013S1011264

PATIENT
  Sex: Female

DRUGS (1)
  1. TEMAZEPAM CAPSULES [Suspect]
     Indication: INSOMNIA
     Route: 048
     Dates: start: 20130517, end: 20130519

REACTIONS (1)
  - Rash [Recovered/Resolved]
